FAERS Safety Report 25206688 (Version 2)
Quarter: 2025Q4

REPORT INFORMATION
  Report Type: Spontaneous
  Country: CN (occurrence: CN)
  Receive Date: 20250417
  Receipt Date: 20251201
  Transmission Date: 20260117
  Serious: Yes (Hospitalization, Other)
  Sender: ASTELLAS
  Company Number: CN-ASTELLAS-2025-AER-020709

PATIENT
  Age: 76 Year
  Sex: Male
  Weight: 70 kg

DRUGS (3)
  1. PADCEV [Suspect]
     Active Substance: ENFORTUMAB VEDOTIN-EJFV
     Indication: Metastatic carcinoma of the bladder
     Dosage: SINGLE DOSE/MEDICATION
     Route: 042
     Dates: start: 20250331
  2. PADCEV [Suspect]
     Active Substance: ENFORTUMAB VEDOTIN-EJFV
     Indication: Metastases to lung
     Route: 042
     Dates: start: 20250408
  3. TORIPALIMAB [Concomitant]
     Active Substance: TORIPALIMAB
     Indication: Product used for unknown indication
     Route: 065

REACTIONS (6)
  - Acute kidney injury [Not Recovered/Not Resolved]
  - Rash vesicular [Not Recovered/Not Resolved]
  - Rash erythematous [Not Recovered/Not Resolved]
  - Rash pruritic [Not Recovered/Not Resolved]
  - Rash [Not Recovered/Not Resolved]
  - Oedema blister [Not Recovered/Not Resolved]

NARRATIVE: CASE EVENT DATE: 20250412
